FAERS Safety Report 4473477-3 (Version None)
Quarter: 2004Q3

REPORT INFORMATION
  Report Type: 
  Country: None (occurrence: None)
  Receive Date: 20040909
  Receipt Date: 20040527
  Transmission Date: 20050211
  Serious: Yes (Hospitalization)
  Sender: FDA-Public Use
  Company Number: A03200401724

PATIENT
  Age: 69 Year
  Sex: Female
  Weight: 73.9363 kg

DRUGS (7)
  1. ELOXATIN [Suspect]
     Indication: COLON CANCER METASTATIC
     Dosage: 175 MG Q2W - INTRAVENOUS NOS
     Route: 042
     Dates: start: 20040128, end: 20040128
  2. LEUCOVORIN CALCIUM [Concomitant]
  3. DOLASETRON MESILATE [Concomitant]
  4. DEXAMETHASONE [Concomitant]
  5. ESTROGENS CONJUGATED [Concomitant]
  6. AMLODIPINE BESYLATE [Concomitant]
  7. ALPRAZOLAM [Concomitant]

REACTIONS (8)
  - AGITATION [None]
  - BACK PAIN [None]
  - DISCOMFORT [None]
  - DISORIENTATION [None]
  - FLUSHING [None]
  - INCONTINENCE [None]
  - RESTLESSNESS [None]
  - VOMITING [None]
